FAERS Safety Report 10010944 (Version 1)
Quarter: 2014Q1

REPORT INFORMATION
  Report Type: Spontaneous
  Country: US (occurrence: US)
  Receive Date: 20140314
  Receipt Date: 20140314
  Transmission Date: 20141002
  Serious: Yes (Other)
  Sender: FDA-Public Use
  Company Number: US-PFIZER INC-2013035586

PATIENT
  Age: 54 Year
  Sex: Female

DRUGS (1)
  1. PREGABALIN [Suspect]
     Dosage: 51 TABLETS OF PREGABALIN 75 MG (3825 MG)
     Route: 048

REACTIONS (6)
  - Overdose [Recovered/Resolved]
  - Depressed level of consciousness [Recovered/Resolved]
  - Convulsion [Recovered/Resolved]
  - Gaze palsy [Recovered/Resolved]
  - Foaming at mouth [Recovered/Resolved]
  - Dyskinesia [Recovered/Resolved]
